FAERS Safety Report 12725035 (Version 1)
Quarter: 2016Q3

REPORT INFORMATION
  Report Type: Spontaneous
  Country: DE (occurrence: DE)
  Receive Date: 20160908
  Receipt Date: 20160908
  Transmission Date: 20161109
  Serious: Yes (Other)
  Sender: FDA-Public Use
  Company Number: DE-009507513-1609DEU003953

PATIENT
  Age: 64 Year
  Sex: Female

DRUGS (5)
  1. IPILIMUMAB [Suspect]
     Active Substance: IPILIMUMAB
     Indication: METASTATIC MALIGNANT MELANOMA
     Dosage: 1 MG/KG, EVERY 3 WEEKS, FOR 12 WEEKS
  2. PEMBROLIZUMAB. [Suspect]
     Active Substance: PEMBROLIZUMAB
     Dosage: 2 MG/KG, EVERY 3 WEEKS, 8 INFUSIONS AS SINGLE AGENT
  3. PEMBROLIZUMAB. [Suspect]
     Active Substance: PEMBROLIZUMAB
     Dosage: 2 MG/KG, EVERY 3 WEEKS, AS MAINTANANCE TREATMENT
  4. IPILIMUMAB [Suspect]
     Active Substance: IPILIMUMAB
     Dosage: 3 MG/KG, EVERY 3 WEEKS, 3 INFUSIONS AS SINGLE AGENT
  5. PEMBROLIZUMAB. [Suspect]
     Active Substance: PEMBROLIZUMAB
     Indication: METASTATIC MALIGNANT MELANOMA
     Dosage: 2 MG/KG, EVERY 3 WEEKS, FOR 12 WEEKS

REACTIONS (2)
  - Retinopathy [Unknown]
  - Treatment failure [Unknown]
